FAERS Safety Report 4866936-2 (Version None)
Quarter: 2005Q4

REPORT INFORMATION
  Report Type: 
  Country: None (occurrence: None)
  Receive Date: 20051222
  Receipt Date: 20051212
  Transmission Date: 20060501
  Serious: Yes (Other)
  Sender: FDA-Public Use
  Company Number: 2005S1000444

PATIENT
  Sex: Male

DRUGS (1)
  1. SORIATANE [Suspect]

REACTIONS (1)
  - URINE COLOUR ABNORMAL [None]
